FAERS Safety Report 8287847-9 (Version None)
Quarter: 2012Q2

REPORT INFORMATION
  Report Type: 
  Country: None (occurrence: None)
  Receive Date: 20120416
  Receipt Date: 20120406
  Transmission Date: 20120825
  Serious: Yes (Life-Threatening, Hospitalization, Disabling)
  Sender: FDA-Public Use
  Company Number: JP-EISAI INC-E7389-01772-CLI-JP

PATIENT
  Sex: Female
  Weight: 53 kg

DRUGS (10)
  1. EPIRUBICIN HYDROCHLORIDE [Suspect]
     Indication: METASTASES TO LIVER
  2. EPIRUBICIN HYDROCHLORIDE [Suspect]
  3. TELEMINSOFT [Concomitant]
     Indication: PROPHYLAXIS
  4. SHAKUYAKU-KANZO-TO [Concomitant]
     Indication: PROPHYLAXIS
     Route: 048
  5. EPIRUBICIN HYDROCHLORIDE [Suspect]
     Indication: BREAST CANCER RECURRENT
     Route: 041
     Dates: start: 20110926, end: 20111114
  6. EPIRUBICIN HYDROCHLORIDE [Suspect]
     Indication: METASTASES TO LYMPH NODES
  7. FERROUS CITRATE [Concomitant]
     Route: 048
  8. EPIRUBICIN HYDROCHLORIDE [Suspect]
     Indication: METASTASES TO LUNG
  9. PREGABALIN [Concomitant]
     Indication: PROPHYLAXIS
     Route: 048
  10. EPIRUBICIN HYDROCHLORIDE [Suspect]
     Indication: METASTASES TO BONE

REACTIONS (4)
  - BLADDER DISORDER [None]
  - ASPARTATE AMINOTRANSFERASE INCREASED [None]
  - SEPTIC SHOCK [None]
  - MONOPLEGIA [None]
